FAERS Safety Report 13480614 (Version 1)
Quarter: 2017Q2

REPORT INFORMATION
  Report Type: Spontaneous
  Country: US (occurrence: US)
  Receive Date: 20170425
  Receipt Date: 20170425
  Transmission Date: 20170830
  Serious: Yes (Other)
  Sender: FDA-Public Use
  Company Number: US-JNJFOC-20170425007

PATIENT
  Sex: Male
  Weight: 60 kg

DRUGS (4)
  1. IMBRUVICA [Suspect]
     Active Substance: IBRUTINIB
     Indication: CHRONIC LYMPHOCYTIC LEUKAEMIA
     Route: 048
     Dates: start: 20141028
  2. ASPIRIN. [Concomitant]
     Active Substance: ASPIRIN
  3. LORATADINE. [Concomitant]
     Active Substance: LORATADINE
  4. LOVASTATIN. [Concomitant]
     Active Substance: LOVASTATIN

REACTIONS (1)
  - Gastrointestinal haemorrhage [Unknown]
